FAERS Safety Report 21373535 (Version 1)
Quarter: 2022Q3

REPORT INFORMATION
  Report Type: Spontaneous
  Country: CN (occurrence: CN)
  Receive Date: 20220925
  Receipt Date: 20220925
  Transmission Date: 20221027
  Serious: Yes (Other)
  Sender: FDA-Public Use
  Company Number: CN-BRISTOL-MYERS SQUIBB COMPANY-2022-108284

PATIENT
  Age: 64 Year
  Sex: Female
  Weight: 50 kg

DRUGS (1)
  1. OPDIVO [Suspect]
     Active Substance: NIVOLUMAB
     Indication: Cervix carcinoma
     Route: 041
     Dates: start: 20211101, end: 20220322

REACTIONS (5)
  - Hypothyroidism [Recovering/Resolving]
  - Oedema [Recovering/Resolving]
  - Renal impairment [Recovering/Resolving]
  - Myocardial necrosis marker increased [Recovering/Resolving]
  - Intentional product use issue [Unknown]

NARRATIVE: CASE EVENT DATE: 20211201
